FAERS Safety Report 25367864 (Version 1)
Quarter: 2025Q2

REPORT INFORMATION
  Report Type: Other
  Country: PE (occurrence: PE)
  Receive Date: 20250528
  Receipt Date: 20250528
  Transmission Date: 20250716
  Serious: Yes (Hospitalization, Other)
  Sender: INNOGENIX, LLC
  Company Number: PE-Innogenix, LLC-2177593

PATIENT
  Age: 67 Year
  Sex: Male

DRUGS (6)
  1. METRONIDAZOLE [Suspect]
     Active Substance: METRONIDAZOLE
     Indication: Product used for unknown indication
  2. ATENOLOL [Concomitant]
     Active Substance: ATENOLOL
  3. VANCOMYCIN HYDROCHLORIDE [Concomitant]
     Active Substance: VANCOMYCIN HYDROCHLORIDE
  4. CEFTRIAXONE [Concomitant]
     Active Substance: CEFTRIAXONE
  5. LOSARTAN [Concomitant]
     Active Substance: LOSARTAN
  6. ASPIRIN [Concomitant]
     Active Substance: ASPIRIN

REACTIONS (8)
  - Neurotoxicity [Recovered/Resolved]
  - Generalised tonic-clonic seizure [Recovered/Resolved]
  - Loss of proprioception [Recovered/Resolved]
  - Dysstasia [Recovered/Resolved]
  - Hyperreflexia [Recovered/Resolved]
  - Dysmetria [Recovered/Resolved]
  - Ataxia [Recovered/Resolved]
  - Dysdiadochokinesis [Recovered/Resolved]
